FAERS Safety Report 8181564-1 (Version None)
Quarter: 2012Q1

REPORT INFORMATION
  Report Type: 
  Country: None (occurrence: None)
  Receive Date: 20120302
  Receipt Date: 20120227
  Transmission Date: 20120608
  Serious: No
  Sender: FDA-Public Use
  Company Number: US-PFIZER INC-2012052095

PATIENT
  Sex: Female
  Weight: 73.5 kg

DRUGS (4)
  1. SPIRONOLACTONE [Concomitant]
     Dosage: 50 MG, 1X/DAY
  2. VITAMIN TAB [Concomitant]
     Dosage: UNK
  3. LIOTHYRONINE SODIUM [Suspect]
     Dosage: 20 MG, DAILY
     Route: 048
     Dates: start: 20110101, end: 20110101
  4. SYNTHROID [Concomitant]
     Indication: THYROID DISORDER
     Dosage: 50 UG, 1X/DAY

REACTIONS (3)
  - ACTIVITIES OF DAILY LIVING IMPAIRED [None]
  - SCIATICA [None]
  - PAIN IN EXTREMITY [None]
